FAERS Safety Report 9394483 (Version 2)
Quarter: 2013Q3

REPORT INFORMATION
  Report Type: Spontaneous
  Country: US (occurrence: US)
  Receive Date: 20130711
  Receipt Date: 20130716
  Transmission Date: 20140515
  Serious: No
  Sender: FDA-Public Use
  Company Number: US-PFIZER INC-2013203364

PATIENT
  Age: 59 Year
  Sex: Female
  Weight: 95.69 kg

DRUGS (5)
  1. SKELAXIN [Suspect]
     Indication: MOBILITY DECREASED
     Dosage: 800 MG, 3X/DAY
     Dates: end: 201304
  2. SKELAXIN [Suspect]
     Indication: MUSCLE RELAXANT THERAPY
  3. TRAMADOL HYDROCHLORIDE [Suspect]
     Indication: MOBILITY DECREASED
     Dosage: 50 MG, 3X/DAY
  4. TRAMADOL HYDROCHLORIDE [Suspect]
     Indication: MUSCLE RELAXANT THERAPY
  5. ZETIA [Concomitant]
     Indication: BLOOD CHOLESTEROL ABNORMAL
     Dosage: UNK
     Dates: end: 201307

REACTIONS (1)
  - Drug ineffective [Unknown]
